FAERS Safety Report 5960953-7 (Version None)
Quarter: 2008Q4

REPORT INFORMATION
  Report Type: 
  Country: None (occurrence: None)
  Receive Date: 20081119
  Receipt Date: 20081113
  Transmission Date: 20090506
  Serious: Yes (Hospitalization)
  Sender: FDA-Public Use
  Company Number: SPV1-2008-02505

PATIENT
  Age: 29 Year
  Sex: Male
  Weight: 103.4 kg

DRUGS (5)
  1. ADDERALL XR 10 [Suspect]
     Indication: ATTENTION DEFICIT/HYPERACTIVITY DISORDER
     Dosage: 30 MG, 2X/DAY, BID, ORAL
     Route: 048
     Dates: start: 20060101, end: 20081001
  2. PROZAC [Concomitant]
  3. TOPROL-XL [Concomitant]
  4. CARDIZEM [Concomitant]
  5. OXYCODONE HCL [Concomitant]

REACTIONS (6)
  - AGGRESSION [None]
  - BRAIN INJURY [None]
  - DYSGRAPHIA [None]
  - OVERDOSE [None]
  - PRESSURE OF SPEECH [None]
  - ROAD TRAFFIC ACCIDENT [None]
